FAERS Safety Report 7655718-4 (Version None)
Quarter: 2011Q3

REPORT INFORMATION
  Report Type: 
  Country: None (occurrence: None)
  Receive Date: 20110804
  Receipt Date: 20110727
  Transmission Date: 20111222
  Serious: Yes (Other)
  Sender: FDA-Public Use
  Company Number: JP-BAXTER-2011BH024664

PATIENT
  Sex: Male
  Weight: 10 kg

DRUGS (3)
  1. NOVOSEVEN [Concomitant]
     Indication: FACTOR VIII INHIBITION
     Route: 042
     Dates: start: 20110605, end: 20110627
  2. FEIBA [Suspect]
     Indication: FACTOR VIII INHIBITION
     Route: 042
     Dates: start: 20110617
  3. FEIBA [Suspect]
     Route: 042
     Dates: start: 20110708

REACTIONS (1)
  - FACTOR VIII INHIBITION [None]
